FAERS Safety Report 8496291-0 (Version None)
Quarter: 2012Q3

REPORT INFORMATION
  Report Type: 
  Country: None (occurrence: None)
  Receive Date: 20120709
  Receipt Date: 20120629
  Transmission Date: 20120928
  Serious: Yes (Other)
  Sender: FDA-Public Use
  Company Number: US-ABBOTT-12P-163-0951250-00

PATIENT
  Sex: Female
  Weight: 80.812 kg

DRUGS (2)
  1. HYDROCHLOROTHIAZIDE [Suspect]
     Indication: PRODUCT USED FOR UNKNOWN INDICATION
     Route: 048
     Dates: start: 20120613, end: 20120626
  2. HUMIRA [Suspect]
     Indication: PSORIASIS
     Route: 050
     Dates: start: 20120613, end: 20120626

REACTIONS (7)
  - SKIN DISCOLOURATION [None]
  - GENERALISED OEDEMA [None]
  - RASH GENERALISED [None]
  - RASH MACULAR [None]
  - PRURITUS [None]
  - RASH [None]
  - SERUM SICKNESS [None]
